FAERS Safety Report 10217217 (Version 18)
Quarter: 2016Q2

REPORT INFORMATION
  Report Type: Report from Study
  Country: US (occurrence: US)
  Receive Date: 20140604
  Receipt Date: 20160513
  Transmission Date: 20160815
  Serious: Yes (Other)
  Sender: FDA-Public Use
  Company Number: US-SANOFI-AVENTIS-2013SA090292

PATIENT
  Age: 47 Year
  Sex: Female

DRUGS (14)
  1. AUBAGIO [Suspect]
     Active Substance: TERIFLUNOMIDE
     Indication: MULTIPLE SCLEROSIS
     Route: 048
     Dates: start: 2009, end: 20100501
  2. AUBAGIO [Suspect]
     Active Substance: TERIFLUNOMIDE
     Indication: MULTIPLE SCLEROSIS
     Route: 048
     Dates: start: 20130825
  3. MORPHINE [Concomitant]
     Active Substance: MORPHINE
  4. AUBAGIO [Suspect]
     Active Substance: TERIFLUNOMIDE
     Indication: MULTIPLE SCLEROSIS
     Route: 048
     Dates: start: 2014, end: 20151102
  5. INTERFERONS [Concomitant]
     Active Substance: INTERFERON
  6. COPAXONE [Concomitant]
     Active Substance: GLATIRAMER ACETATE
  7. AUBAGIO [Suspect]
     Active Substance: TERIFLUNOMIDE
     Indication: MULTIPLE SCLEROSIS
     Route: 048
     Dates: start: 20120101, end: 20121101
  8. AVONEX [Concomitant]
     Active Substance: INTERFERON BETA-1A
     Dates: start: 20030101, end: 20030601
  9. REBIF [Concomitant]
     Active Substance: INTERFERON BETA-1A
     Dates: start: 20030601, end: 20080101
  10. AUBAGIO [Suspect]
     Active Substance: TERIFLUNOMIDE
     Indication: MULTIPLE SCLEROSIS
     Route: 048
     Dates: end: 2016
  11. AUBAGIO [Suspect]
     Active Substance: TERIFLUNOMIDE
     Indication: MULTIPLE SCLEROSIS
     Route: 048
     Dates: start: 2016
  12. AUBAGIO [Suspect]
     Active Substance: TERIFLUNOMIDE
     Indication: MULTIPLE SCLEROSIS
     Route: 048
     Dates: start: 20100501
  13. BENADRYL [Concomitant]
     Active Substance: DIPHENHYDRAMINE HYDROCHLORIDE
  14. BETASERON [Concomitant]
     Active Substance: INTERFERON BETA-1B

REACTIONS (70)
  - Joint dislocation [Unknown]
  - Pulmonary congestion [Unknown]
  - Starvation [Unknown]
  - Anxiety [Unknown]
  - Nausea [Not Recovered/Not Resolved]
  - White blood cell count decreased [Unknown]
  - Faeces discoloured [Not Recovered/Not Resolved]
  - Weight decreased [Not Recovered/Not Resolved]
  - Skin reaction [Unknown]
  - Obsessive-compulsive personality disorder [Unknown]
  - Loss of consciousness [Unknown]
  - Pyrexia [Not Recovered/Not Resolved]
  - General physical health deterioration [Unknown]
  - Abdominal pain upper [Not Recovered/Not Resolved]
  - Visual impairment [Unknown]
  - Bronchitis [Unknown]
  - Product use issue [Unknown]
  - Concussion [Unknown]
  - Tremor [Not Recovered/Not Resolved]
  - Stress [Not Recovered/Not Resolved]
  - Feeling abnormal [Not Recovered/Not Resolved]
  - Emotional distress [Not Recovered/Not Resolved]
  - Decreased appetite [Not Recovered/Not Resolved]
  - Agoraphobia [Unknown]
  - Diarrhoea [Not Recovered/Not Resolved]
  - Amnesia [Not Recovered/Not Resolved]
  - Immunodeficiency [Unknown]
  - Spinal column injury [Unknown]
  - Drug withdrawal syndrome [Not Recovered/Not Resolved]
  - Restlessness [Unknown]
  - Abdominal pain [Unknown]
  - Nerve compression [Unknown]
  - Vomiting [Unknown]
  - Cognitive disorder [Unknown]
  - Tunnel vision [Unknown]
  - Apparent death [Unknown]
  - Cerebral disorder [Not Recovered/Not Resolved]
  - Asthenia [Not Recovered/Not Resolved]
  - Hypotension [Not Recovered/Not Resolved]
  - Increased appetite [Unknown]
  - Memory impairment [Not Recovered/Not Resolved]
  - Agitation [Unknown]
  - Unevaluable event [Unknown]
  - Seizure [Unknown]
  - Multiple sclerosis [Unknown]
  - Insomnia [Not Recovered/Not Resolved]
  - Movement disorder [Recovering/Resolving]
  - Feeling of body temperature change [Not Recovered/Not Resolved]
  - Clumsiness [Unknown]
  - Upper respiratory tract infection [Unknown]
  - Dysgeusia [Unknown]
  - Fatigue [Unknown]
  - Therapeutic response unexpected [Unknown]
  - Drug dose omission [Unknown]
  - Simple partial seizures [Unknown]
  - Drug detoxification [Not Recovered/Not Resolved]
  - Feeling abnormal [Unknown]
  - Sensory loss [Recovering/Resolving]
  - Sensory disturbance [Not Recovered/Not Resolved]
  - Fear [Unknown]
  - Abdominal pain upper [Recovering/Resolving]
  - Paraesthesia [Unknown]
  - Haematochezia [Not Recovered/Not Resolved]
  - Chills [Not Recovered/Not Resolved]
  - Malaise [Not Recovered/Not Resolved]
  - Pain [Unknown]
  - Abdominal pain lower [Unknown]
  - Fall [Recovered/Resolved]
  - Weight increased [Recovering/Resolving]
  - Chromaturia [Recovering/Resolving]

NARRATIVE: CASE EVENT DATE: 201505
